FAERS Safety Report 6782628-7 (Version None)
Quarter: 2010Q2

REPORT INFORMATION
  Report Type: 
  Country: None (occurrence: None)
  Receive Date: 20100621
  Receipt Date: 20100609
  Transmission Date: 20101027
  Serious: Yes (Other)
  Sender: FDA-Public Use
  Company Number: CA-PFIZER INC-2010075907

PATIENT
  Age: 49 Year
  Sex: Female

DRUGS (4)
  1. VIAGRA [Suspect]
     Dosage: UNK
  2. EFFEXOR XR [Suspect]
     Indication: DEPRESSION
     Dosage: 150 MG, UNK
  3. EFFEXOR XR [Suspect]
     Dosage: UNK
  4. CELEXA [Suspect]
     Indication: DEPRESSION
     Dosage: 10 MG, 1X/DAY

REACTIONS (3)
  - ANORGASMIA [None]
  - HALLUCINATION, TACTILE [None]
  - VISUAL IMPAIRMENT [None]
